FAERS Safety Report 7753940-X (Version None)
Quarter: 2011Q3

REPORT INFORMATION
  Report Type: 
  Country: None (occurrence: None)
  Receive Date: 20110825
  Receipt Date: 20110715
  Transmission Date: 20111222
  Serious: No
  Sender: FDA-Public Use
  Company Number: 332784

PATIENT
  Age: 64 Year
  Sex: Male

DRUGS (2)
  1. VICTOZA [Suspect]
     Indication: TYPE 2 DIABETES MELLITUS
     Dosage: 0.6 MG, QD, SUBCUTANEOUS, 1.8 MG, QD, SUBCUTANEOUS
     Route: 058
  2. VICTOZA [Suspect]

REACTIONS (4)
  - NAUSEA [None]
  - VOMITING [None]
  - ABDOMINAL DISCOMFORT [None]
  - DIZZINESS [None]
